FAERS Safety Report 6864822-X (Version None)
Quarter: 2010Q3

REPORT INFORMATION
  Report Type: 
  Country: None (occurrence: None)
  Receive Date: 20100721
  Receipt Date: 20080404
  Transmission Date: 20110219
  Serious: No
  Sender: FDA-Public Use
  Company Number: US-PFIZER INC-2008030782

PATIENT
  Sex: Female
  Weight: 90.9 kg

DRUGS (2)
  1. CHANTIX [Suspect]
     Indication: SMOKING CESSATION THERAPY
     Dates: start: 20080401
  2. MOBIC [Concomitant]

REACTIONS (6)
  - CHILLS [None]
  - HEADACHE [None]
  - HYPERHIDROSIS [None]
  - INFLUENZA [None]
  - PAIN [None]
  - PYREXIA [None]
